FAERS Safety Report 8875014 (Version 3)
Quarter: 2012Q4

REPORT INFORMATION
  Report Type: 
  Country: US (occurrence: US)
  Receive Date: 20121029
  Receipt Date: 20121120
  Transmission Date: 20130627
  Serious: Yes (Other)
  Sender: FDA-Public Use
  Company Number: US-PFIZER INC-2012269549

PATIENT
  Age: 37 Year
  Sex: Male
  Weight: 100 kg

DRUGS (3)
  1. PROTONIX [Suspect]
     Indication: GASTROESOPHAGEAL REFLUX DISEASE
     Dosage: 40 mg, daily
  2. PROTONIX [Suspect]
     Indication: HEARTBURN
  3. ZIPSOR [Concomitant]
     Dosage: 25 mg, 4x/day

REACTIONS (3)
  - Road traffic accident [Unknown]
  - Syringomyelia [Unknown]
  - Spinal cord injury [Unknown]
